FAERS Safety Report 15806442 (Version 3)
Quarter: 2019Q2

REPORT INFORMATION
  Report Type: Spontaneous
  Country: US (occurrence: US)
  Receive Date: 20190110
  Receipt Date: 20190402
  Transmission Date: 20190711
  Serious: Yes (Other)
  Sender: FDA-Public Use
  Company Number: US-APOTEX-2019AP005073

PATIENT
  Sex: Male

DRUGS (2)
  1. CYCLOBENZAPRINE. [Suspect]
     Active Substance: CYCLOBENZAPRINE
     Indication: PAIN
     Dosage: 1 DF, Q.M.T. OCCASIONALLY
     Route: 048
  2. CYCLOBENZAPRINE. [Suspect]
     Active Substance: CYCLOBENZAPRINE
     Indication: FIBROMYALGIA
     Dosage: 10-20 MG, Q.H.S.
     Route: 048

REACTIONS (5)
  - Mood altered [Unknown]
  - Feeling abnormal [Recovered/Resolved]
  - Drug dependence [Unknown]
  - Drug ineffective [Unknown]
  - Dissociation [Recovered/Resolved]
